FAERS Safety Report 25169697 (Version 2)
Quarter: 2025Q2

REPORT INFORMATION
  Report Type: Spontaneous
  Country: JP (occurrence: JP)
  Receive Date: 20250407
  Receipt Date: 20250620
  Transmission Date: 20250717
  Serious: Yes (Life-Threatening)
  Sender: MERCK SHARP & DOHME LLC
  Company Number: JP-009507513-2273562

PATIENT
  Age: 73 Year
  Sex: Female
  Weight: 59 kg

DRUGS (6)
  1. KEYTRUDA [Suspect]
     Active Substance: PEMBROLIZUMAB
     Indication: Adenoid cystic carcinoma
     Dosage: 400 MG ONCE EVERY 6 WEEKS, STRENGTH: 100 MG
     Route: 041
     Dates: start: 20240521, end: 20250307
  2. ROSUVASTATIN [Concomitant]
     Active Substance: ROSUVASTATIN
     Dosage: 2.5MG ^DSEP^, 1 TABLET 1? AFTER BREAKFAST, TAKEN FOR AT LEAST 1 YEAR
     Route: 048
  3. OLMESARTAN MEDOXOMIL [Concomitant]
     Active Substance: OLMESARTAN MEDOXOMIL
     Dosage: 40MG ^DSEP^, 1 TABLET 1? AFTER BREAKFAST, TAKEN FOR AT LEAST 1 YEAR
     Route: 048
  4. ONGLYZA [Concomitant]
     Active Substance: SAXAGLIPTIN HYDROCHLORIDE
     Route: 048
     Dates: end: 202502
  5. CARBOPLATIN [Suspect]
     Active Substance: CARBOPLATIN
     Indication: Adenoid cystic carcinoma
     Dates: start: 20240521
  6. FLUOROURACIL [Suspect]
     Active Substance: FLUOROURACIL
     Indication: Adenoid cystic carcinoma
     Dates: start: 20240521

REACTIONS (2)
  - Fulminant type 1 diabetes mellitus [Recovering/Resolving]
  - Product use in unapproved indication [Unknown]

NARRATIVE: CASE EVENT DATE: 20250313
